FAERS Safety Report 13659583 (Version 1)
Quarter: 2017Q2

REPORT INFORMATION
  Report Type: Spontaneous
  Country: US (occurrence: US)
  Receive Date: 20170616
  Receipt Date: 20170616
  Transmission Date: 20170830
  Serious: Yes (Hospitalization)
  Sender: FDA-Public Use
  Company Number: None

PATIENT
  Age: 67 Year
  Sex: Female
  Weight: 97.1 kg

DRUGS (10)
  1. THERAGRAN KDUR [Concomitant]
  2. DIPROLENE [Concomitant]
     Active Substance: BETAMETHASONE DIPROPIONATE
  3. AMBIEN [Concomitant]
     Active Substance: ZOLPIDEM TARTRATE
  4. LIORESAL [Concomitant]
     Active Substance: BACLOFEN
  5. APIXIPAN [Concomitant]
  6. HUMIRA [Concomitant]
     Active Substance: ADALIMUMAB
  7. ULTRAM [Concomitant]
     Active Substance: TRAMADOL HYDROCHLORIDE
  8. OXYCODONE [Suspect]
     Active Substance: OXYCODONE
     Indication: HIP SURGERY
     Dosage: 5MG X 2 Q4HRS PO
     Route: 048
  9. HYZAAR [Concomitant]
     Active Substance: HYDROCHLOROTHIAZIDE\LOSARTAN POTASSIUM
  10. OXYCODONE [Suspect]
     Active Substance: OXYCODONE
     Indication: PAIN
     Dosage: 5MG X 2 Q4HRS PO
     Route: 048

REACTIONS (2)
  - Fall [None]
  - Overdose [None]

NARRATIVE: CASE EVENT DATE: 20170324
